FAERS Safety Report 9922474 (Version 1)
Quarter: 2014Q1

REPORT INFORMATION
  Report Type: Spontaneous
  Country: US (occurrence: US)
  Receive Date: 20140225
  Receipt Date: 20140225
  Transmission Date: 20141002
  Serious: No
  Sender: FDA-Public Use
  Company Number: US-MYLANLABS-2013S1021938

PATIENT
  Age: 84 Year
  Sex: Female
  Weight: 66.23 kg

DRUGS (3)
  1. ATENOLOL TABLETS, USP [Suspect]
     Indication: CARDIAC DISORDER
     Route: 048
     Dates: start: 201308, end: 20130919
  2. ATENOLOL TABLETS, USP [Suspect]
     Indication: OFF LABEL USE
     Route: 048
     Dates: start: 201308, end: 20130919
  3. VALIUM [Concomitant]
     Indication: SLEEP DISORDER
     Dosage: PRN

REACTIONS (3)
  - Asthenia [Recovered/Resolved]
  - Nausea [Recovered/Resolved]
  - Vomiting [Recovered/Resolved]
